FAERS Safety Report 19762135 (Version 1)
Quarter: 2021Q3

REPORT INFORMATION
  Report Type: Spontaneous
  Country: US (occurrence: US)
  Receive Date: 20210829
  Receipt Date: 20210829
  Transmission Date: 20211014
  Serious: Yes (Other)
  Sender: FDA-Public Use
  Company Number: None

PATIENT
  Age: 28 Year
  Sex: Female

DRUGS (1)
  1. TRIAMCINOLONE [Suspect]
     Active Substance: TRIAMCINOLONE
     Indication: ECZEMA
     Dates: start: 20000501, end: 20140501

REACTIONS (21)
  - Neuralgia [None]
  - Anxiety [None]
  - Fatigue [None]
  - Steroid withdrawal syndrome [None]
  - Inflammation [None]
  - Weight decreased [None]
  - Feeling of body temperature change [None]
  - Eczema [None]
  - Weight increased [None]
  - Insomnia [None]
  - Alopecia [None]
  - Economic problem [None]
  - Pruritus [None]
  - Discharge [None]
  - Skin hypertrophy [None]
  - Oedema [None]
  - Rebound effect [None]
  - Depression [None]
  - Skin atrophy [None]
  - Skin discolouration [None]
  - Skin exfoliation [None]

NARRATIVE: CASE EVENT DATE: 20140501
